FAERS Safety Report 7832430-X (Version None)
Quarter: 2011Q4

REPORT INFORMATION
  Report Type: 
  Country: None (occurrence: None)
  Receive Date: 20111022
  Receipt Date: 20111017
  Transmission Date: 20120403
  Serious: Yes (Other)
  Sender: FDA-Public Use
  Company Number: CA-BAYER-2011-099854

PATIENT
  Sex: Female
  Weight: 64 kg

DRUGS (3)
  1. ORTHO TRI-CYCLEN [Concomitant]
     Indication: CONTRACEPTION
     Dosage: UNK
     Route: 048
     Dates: start: 20040101, end: 20090411
  2. DIENOGEST 0/2/3/0MG + ESTRADIOL VALERATE 3/2/2/1MG [Suspect]
     Dosage: UNK UNK, QD
     Route: 048
     Dates: start: 20090412, end: 20100410
  3. TERAZOL 1 [Concomitant]
     Indication: VAGINAL INFECTION
     Dosage: UNK
     Route: 067
     Dates: start: 20100326, end: 20100328

REACTIONS (2)
  - CERVIX CARCINOMA STAGE 0 [None]
  - CERVICAL DYSPLASIA [None]
